FAERS Safety Report 12266355 (Version 1)
Quarter: 2016Q2

REPORT INFORMATION
  Report Type: Spontaneous
  Country: PL (occurrence: PL)
  Receive Date: 20160413
  Receipt Date: 20160413
  Transmission Date: 20160815
  Serious: Yes (Hospitalization)
  Sender: FDA-Public Use
  Company Number: PHHY2016PL047749

PATIENT
  Age: 4 Year
  Sex: Female
  Weight: 17.5 kg

DRUGS (1)
  1. AMOKSIKLAV [Suspect]
     Active Substance: AMOXICILLIN\CLAVULANATE POTASSIUM
     Indication: RESPIRATORY TRACT INFECTION
     Dosage: 2 ML, BID
     Route: 048
     Dates: start: 20160128, end: 20160206

REACTIONS (2)
  - Urticaria [Recovered/Resolved]
  - Oedema peripheral [Recovered/Resolved]

NARRATIVE: CASE EVENT DATE: 20160205
